FAERS Safety Report 21552965 (Version 2)
Quarter: 2023Q4

REPORT INFORMATION
  Report Type: Spontaneous
  Country: CN (occurrence: CN)
  Receive Date: 20221104
  Receipt Date: 20231006
  Transmission Date: 20240110
  Serious: Yes (Life-Threatening, Hospitalization, Other)
  Sender: FDA-Public Use
  Company Number: CN-BAYER-2022A154146

PATIENT
  Age: 58 Year
  Sex: Male
  Weight: 75 kg

DRUGS (2)
  1. ULTRAVIST [Suspect]
     Active Substance: IOPROMIDE
     Indication: Computerised tomogram abdomen
     Dosage: 100 ML, ONCE
     Route: 042
     Dates: start: 20221019, end: 20221019
  2. ULTRAVIST [Suspect]
     Active Substance: IOPROMIDE
     Indication: Cryptorchism

REACTIONS (7)
  - Anaphylactic shock [Recovering/Resolving]
  - Pneumonia [None]
  - Loss of consciousness [Recovering/Resolving]
  - Unresponsive to stimuli [Recovering/Resolving]
  - Coma [Recovering/Resolving]
  - Sputum discoloured [None]
  - Pleural effusion [None]

NARRATIVE: CASE EVENT DATE: 20221019
